FAERS Safety Report 5677768-X (Version None)
Quarter: 2008Q1

REPORT INFORMATION
  Report Type: 
  Country: None (occurrence: None)
  Receive Date: 20080318
  Receipt Date: 20080229
  Transmission Date: 20080703
  Serious: Yes (Hospitalization)
  Sender: FDA-Public Use
  Company Number: 2008-01641

PATIENT
  Age: 53 Year
  Sex: Male

DRUGS (9)
  1. PREDNISOLONE [Suspect]
     Indication: PROPHYLAXIS AGAINST GRAFT VERSUS HOST DISEASE
     Dosage: 30 MG, QOD, ORAL, UNKNOWN TAPER DOSE, ORAL
     Route: 048
  2. CYCLOSPORINE [Suspect]
     Indication: PROPHYLAXIS AGAINST GRAFT VERSUS HOST DISEASE
     Dosage: 50 MG, Q 12 HOURS, ORAL
     Route: 048
  3. ENALAPRIL MALEATE [Concomitant]
  4. BISOPROLOL FUMARATE [Concomitant]
  5. SULFAMETHOXAZOLE AND TRIMETHOPRIM [Concomitant]
  6. ACYCLOVIR [Concomitant]
  7. MIANSERIN (MIANSERIN) [Concomitant]
  8. FOLATE SODIUM (FOLATE SODIUM) [Concomitant]
  9. MAGNESIUM SULFATE [Concomitant]

REACTIONS (1)
  - NEPHROTIC SYNDROME [None]
